FAERS Safety Report 9822807 (Version 3)
Quarter: 2015Q1

REPORT INFORMATION
  Report Type: Spontaneous
  Country: US (occurrence: US)
  Receive Date: 20140116
  Receipt Date: 20150129
  Transmission Date: 20150721
  Serious: Yes (Death, Hospitalization, Disabling, Other)
  Sender: FDA-Public Use
  Company Number: US-009507513-1401USA004907

PATIENT
  Sex: Female
  Weight: 56.87 kg

DRUGS (3)
  1. JANUMET [Suspect]
     Active Substance: METFORMIN HYDROCHLORIDE\SITAGLIPTIN PHOSPHATE
     Dosage: 50/1000MG, BID
     Route: 048
     Dates: start: 20080527, end: 20080626
  2. JANUMET [Suspect]
     Active Substance: METFORMIN HYDROCHLORIDE\SITAGLIPTIN PHOSPHATE
     Dosage: UNK UNK, BID
     Route: 048
     Dates: start: 20090507, end: 20091102
  3. JANUMET [Suspect]
     Active Substance: METFORMIN HYDROCHLORIDE\SITAGLIPTIN PHOSPHATE
     Dosage: 50/1000MG, BID
     Route: 048
     Dates: start: 20100125, end: 20100326

REACTIONS (20)
  - Tobacco abuse [Unknown]
  - Urinary tract infection [Unknown]
  - Atelectasis [Unknown]
  - Abdominal pain [Unknown]
  - Type 2 diabetes mellitus [Unknown]
  - Diverticulitis [Unknown]
  - Pancreatic mass [Unknown]
  - Urinary tract infection [Unknown]
  - Aortic arteriosclerosis [Unknown]
  - Ascites [Unknown]
  - Ovarian mass [Unknown]
  - Depression [Unknown]
  - Adnexa uteri mass [Unknown]
  - Pulmonary mass [Unknown]
  - Insomnia [Unknown]
  - Pancreatic carcinoma [Fatal]
  - Anaemia [Unknown]
  - Polyuria [Unknown]
  - Ovarian cancer metastatic [Unknown]
  - Spinal deformity [Unknown]

NARRATIVE: CASE EVENT DATE: 20100125
